FAERS Safety Report 25955358 (Version 1)
Quarter: 2025Q4

REPORT INFORMATION
  Report Type: Report from Study
  Country: US (occurrence: US)
  Receive Date: 20251024
  Receipt Date: 20251024
  Transmission Date: 20260118
  Serious: Yes (Hospitalization, Other)
  Sender: IPSEN BIOPHARMACEUTICALS, INC.
  Company Number: US-IPSEN Group, Research and Development-2023-17222

PATIENT
  Age: 73 Year
  Sex: Female
  Weight: 59 kg

DRUGS (6)
  1. ONIVYDE [Suspect]
     Active Substance: IRINOTECAN HYDROCHLORIDE
     Indication: Pancreatic carcinoma metastatic
     Dosage: 81 MG, 1 CYCLICAL
     Dates: start: 20230621, end: 20230621
  2. ONIVYDE [Suspect]
     Active Substance: IRINOTECAN HYDROCHLORIDE
     Dosage: 81 MG, 1 CYCLICAL
     Dates: start: 20230622, end: 20230622
  3. FLUOROURACIL [Suspect]
     Active Substance: FLUOROURACIL
     Indication: Pancreatic carcinoma metastatic
     Dates: start: 20230621, end: 20230621
  4. FLUOROURACIL [Suspect]
     Active Substance: FLUOROURACIL
     Dosage: 3865 MG
     Dates: start: 20230622, end: 20230624
  5. LEUCOVORIN CALCIUM [Suspect]
     Active Substance: LEUCOVORIN CALCIUM
     Indication: Pancreatic carcinoma metastatic
     Dates: start: 20230621, end: 20230621
  6. LEUCOVORIN CALCIUM [Suspect]
     Active Substance: LEUCOVORIN CALCIUM
     Dosage: 645 MG
     Dates: start: 20230622, end: 20230622

REACTIONS (2)
  - Embolism arterial [Recovering/Resolving]
  - Ascites [Recovering/Resolving]

NARRATIVE: CASE EVENT DATE: 20230707
